FAERS Safety Report 6168131-6 (Version None)
Quarter: 2009Q2

REPORT INFORMATION
  Report Type: 
  Country: None (occurrence: None)
  Receive Date: 20090427
  Receipt Date: 20090418
  Transmission Date: 20091009
  Serious: Yes (Other)
  Sender: FDA-Public Use
  Company Number: GB-BAYER-200919044GPV

PATIENT
  Age: 61 Year
  Sex: Female

DRUGS (9)
  1. FLUDARABINE PHOSPHATE [Suspect]
     Indication: MANTLE CELL LYMPHOMA
     Route: 048
  2. FLUDARABINE PHOSPHATE [Suspect]
     Route: 048
  3. FLUDARABINE PHOSPHATE [Suspect]
     Route: 048
  4. CYCLOPHOSPHAMIDE [Suspect]
     Indication: MANTLE CELL LYMPHOMA
     Route: 048
  5. CYCLOPHOSPHAMIDE [Suspect]
     Route: 048
  6. CYCLOPHOSPHAMIDE [Suspect]
     Route: 048
  7. CYCLOPHOSPHAMIDE [Concomitant]
     Indication: HAEMATOPOIETIC STEM CELL MOBILISATION
  8. NEUPOGEN [Concomitant]
     Indication: HAEMATOPOIETIC STEM CELL MOBILISATION
  9. NEUPOGEN [Concomitant]

REACTIONS (1)
  - BLOOD STEM CELL HARVEST FAILURE [None]
